FAERS Safety Report 7784782-7 (Version None)
Quarter: 2011Q3

REPORT INFORMATION
  Report Type: 
  Country: None (occurrence: None)
  Receive Date: 20110928
  Receipt Date: 20110919
  Transmission Date: 20111222
  Serious: Yes (Hospitalization)
  Sender: FDA-Public Use
  Company Number: BR-US-EMD SERONO, INC.-7076176

PATIENT
  Sex: Male

DRUGS (4)
  1. LIORESAL [Concomitant]
  2. GABAPENTINE [Concomitant]
  3. REBIF [Suspect]
     Indication: RELAPSING-REMITTING MULTIPLE SCLEROSIS
     Dates: start: 20110721
  4. CARBAMAZEPINE [Concomitant]

REACTIONS (4)
  - URINARY TRACT INFECTION [None]
  - DISORIENTATION [None]
  - MUSCLE SPASMS [None]
  - ESCHAR [None]
